FAERS Safety Report 22184991 (Version 3)
Quarter: 2023Q2

REPORT INFORMATION
  Report Type: Spontaneous
  Country: GB (occurrence: GB)
  Receive Date: 20230407
  Receipt Date: 20230504
  Transmission Date: 20230722
  Serious: Yes (Other)
  Sender: FDA-Public Use
  Company Number: GB-AMGEN-GBRSP2023054911

PATIENT
  Age: 30 Year
  Sex: Female
  Weight: 101.6 kg

DRUGS (8)
  1. ADALIMUMAB [Suspect]
     Active Substance: ADALIMUMAB
     Indication: Psoriasis
     Dosage: 40 MILLIGRAM, Q2WK
     Route: 065
     Dates: start: 20190211, end: 20200106
  2. CITALOPRAM [Concomitant]
     Active Substance: CITALOPRAM HYDROBROMIDE
     Dosage: UNK
     Dates: start: 20100617
  3. DESOGESTREL [Concomitant]
     Active Substance: DESOGESTREL
     Dosage: UNK
     Dates: start: 20150615
  4. ENSTILAR [Concomitant]
     Active Substance: BETAMETHASONE DIPROPIONATE\CALCIPOTRIENE HYDRATE
     Dosage: UNK
     Dates: start: 20181210
  5. COVID-19 vaccine [Concomitant]
     Dosage: UNK
     Dates: start: 20210123, end: 20210123
  6. COVID-19 vaccine [Concomitant]
     Dosage: UNK
     Dates: start: 20210415, end: 20210415
  7. COVID-19 vaccine [Concomitant]
     Dosage: UNK
     Dates: start: 20211216, end: 20211216
  8. COVID-19 vaccine [Concomitant]
     Dosage: UNK
     Dates: start: 20221009, end: 20221009

REACTIONS (1)
  - Maternal exposure during pregnancy [Unknown]

NARRATIVE: CASE EVENT DATE: 20221018
